FAERS Safety Report 23587988 (Version 1)
Quarter: 2024Q1

REPORT INFORMATION
  Report Type: Spontaneous
  Country: US (occurrence: US)
  Receive Date: 20240301
  Receipt Date: 20240301
  Transmission Date: 20240410
  Serious: No
  Sender: FDA-Public Use
  Company Number: US-PFIZER INC-PV202300081193

PATIENT
  Age: 14 Year
  Sex: Female

DRUGS (3)
  1. IBRANCE [Suspect]
     Active Substance: PALBOCICLIB
     Indication: Adrenal gland cancer
     Dosage: 75 MG
  2. OXALIPLATIN [Suspect]
     Active Substance: OXALIPLATIN
     Indication: Adrenal gland cancer
     Dosage: UNK
  3. MEKINIST [Concomitant]
     Active Substance: TRAMETINIB DIMETHYL SULFOXIDE
     Indication: Adrenal gland cancer

REACTIONS (2)
  - Off label use [Unknown]
  - Off label use [Unknown]
